FAERS Safety Report 10512380 (Version 4)
Quarter: 2014Q4

REPORT INFORMATION
  Report Type: Report from Study
  Country: CA (occurrence: CA)
  Receive Date: 20141010
  Receipt Date: 20141124
  Transmission Date: 20150528
  Serious: Yes (Hospitalization, Other)
  Sender: FDA-Public Use
  Company Number: CA-GILEAD-2014-0117252

PATIENT
  Age: 59 Year
  Sex: Male
  Weight: 80.2 kg

DRUGS (11)
  1. TYLENOL [Concomitant]
     Active Substance: ACETAMINOPHEN
     Indication: PREMEDICATION
     Dosage: 650 MG, UNK
     Dates: start: 20140814, end: 20140904
  2. BENADRYL [Concomitant]
     Active Substance: DIPHENHYDRAMINE HYDROCHLORIDE
     Indication: STEVENS-JOHNSON SYNDROME
     Dosage: UNK
     Dates: start: 20141003, end: 20141016
  3. IDELALISIB [Suspect]
     Active Substance: IDELALISIB
     Indication: NON-HODGKIN^S LYMPHOMA UNSPECIFIED HISTOLOGY INDOLENT
     Dosage: 150 MG, BID
     Route: 048
     Dates: start: 20140814, end: 20140925
  4. BENDAMUSTINE [Suspect]
     Active Substance: BENDAMUSTINE
     Indication: NON-HODGKIN^S LYMPHOMA UNSPECIFIED HISTOLOGY INDOLENT
     Dosage: 177 MG, CYCLICAL
     Route: 042
     Dates: start: 20140814, end: 20140912
  5. ZOFRAN                             /00955302/ [Concomitant]
     Indication: PREMEDICATION
     Dosage: UNK
     Dates: start: 20140814, end: 20141016
  6. SOLU-MEDROL [Concomitant]
     Active Substance: METHYLPREDNISOLONE SODIUM SUCCINATE
     Indication: PREMEDICATION
     Dosage: UNK
     Dates: start: 20140814, end: 20140904
  7. TYLENOL [Concomitant]
     Active Substance: ACETAMINOPHEN
     Indication: PYREXIA
     Dosage: 1 G, UNK
     Dates: start: 20141002, end: 20141016
  8. RITUXIMAB [Suspect]
     Active Substance: RITUXIMAB
     Indication: NON-HODGKIN^S LYMPHOMA UNSPECIFIED HISTOLOGY INDOLENT
     Dosage: 739 MG, CYCLICAL
     Route: 042
     Dates: start: 20140814, end: 20140911
  9. TYLENOL [Concomitant]
     Active Substance: ACETAMINOPHEN
     Indication: HEADACHE
     Dosage: 500 MG, UNK
     Dates: start: 20140908, end: 20140909
  10. BENADRYL [Concomitant]
     Active Substance: DIPHENHYDRAMINE HYDROCHLORIDE
     Indication: PREMEDICATION
     Dosage: UNK
     Dates: start: 20140814, end: 20140904
  11. DIFLUCAN [Concomitant]
     Active Substance: FLUCONAZOLE
     Indication: SKIN CANDIDA
     Dosage: UNK
     Dates: start: 20140909, end: 20140909

REACTIONS (1)
  - Stevens-Johnson syndrome [Recovered/Resolved]

NARRATIVE: CASE EVENT DATE: 20140927
